FAERS Safety Report 4388963-4 (Version None)
Quarter: 2004Q2

REPORT INFORMATION
  Report Type: 
  Country: None (occurrence: None)
  Receive Date: 20040628
  Receipt Date: 20040614
  Transmission Date: 20050107
  Serious: Yes (Other)
  Sender: FDA-Public Use
  Company Number: DEWYE844522JUN04

PATIENT
  Sex: Female

DRUGS (1)
  1. VENLAFAXINE HCL [Suspect]
     Dosage: SEE IMAGE
     Route: 064

REACTIONS (11)
  - CAESAREAN SECTION [None]
  - CLEFT PALATE [None]
  - CONGENITAL CEREBELLAR AGENESIS [None]
  - DRUG EXPOSURE DURING PREGNANCY [None]
  - HAND DEFORMITY [None]
  - HEAD DEFORMITY [None]
  - HYPOTONIA NEONATAL [None]
  - MULTIPLE CONGENITAL ABNORMALITIES [None]
  - NEONATAL DISORDER [None]
  - REFLEXES ABNORMAL [None]
  - VENTRICULAR INTERNAL DIAMETER ABNORMAL [None]
